FAERS Safety Report 24983444 (Version 1)
Quarter: 2025Q1

REPORT INFORMATION
  Report Type: Spontaneous
  Country: US (occurrence: US)
  Receive Date: 20250219
  Receipt Date: 20250219
  Transmission Date: 20250409
  Serious: Yes (Other)
  Sender: AMGEN
  Company Number: US-AMGEN-USASP2025028737

PATIENT
  Age: 7 Year
  Sex: Male

DRUGS (12)
  1. PREDNISONE [Suspect]
     Active Substance: PREDNISONE
     Indication: Lymphatic malformation
     Dosage: 50 MILLIGRAM, QD
     Route: 048
  2. PREDNISONE [Suspect]
     Active Substance: PREDNISONE
     Dosage: 10 MILLIGRAM, QD, TAPERED
     Route: 048
  3. PREDNISONE [Suspect]
     Active Substance: PREDNISONE
     Route: 048
  4. PREDNISONE [Suspect]
     Active Substance: PREDNISONE
     Dosage: 10 MILLIGRAM, QD, TAPERED
     Route: 048
  5. SIROLIMUS [Concomitant]
     Active Substance: SIROLIMUS
     Route: 065
  6. SIROLIMUS [Concomitant]
     Active Substance: SIROLIMUS
     Dosage: 2.5 MILLIGRAM, BID
  7. METHYLPREDNISOLONE [Concomitant]
     Active Substance: METHYLPREDNISOLONE
  8. VINCRISTINE [Concomitant]
     Active Substance: VINCRISTINE
     Dosage: WEEKLY FOR EIGHT DOSES
     Route: 065
  9. VINCRISTINE [Concomitant]
     Active Substance: VINCRISTINE
     Dosage: BIWEEKLY FOR SIX DOSES
     Route: 065
  10. VINCRISTINE [Concomitant]
     Active Substance: VINCRISTINE
     Dosage: EVERY 3 WEEKS FOR EIGHT DOSES
     Route: 065
  11. ZOLEDRONIC ACID [Concomitant]
     Active Substance: ZOLEDRONIC ACID
     Dosage: 0.025 MILLIGRAM/KILOGRAM, QMO
     Route: 040
  12. ZOLEDRONIC ACID [Concomitant]
     Active Substance: ZOLEDRONIC ACID
     Dosage: 0.025 MILLIGRAM/KILOGRAM, Q3MO
     Route: 040

REACTIONS (2)
  - Thrombocytopenia [Unknown]
  - Off label use [Unknown]
